FAERS Safety Report 6403119-9 (Version None)
Quarter: 2009Q4

REPORT INFORMATION
  Report Type: 
  Country: None (occurrence: None)
  Receive Date: 20091015
  Receipt Date: 20091015
  Transmission Date: 20100525
  Serious: Yes (Other)
  Sender: FDA-Public Use
  Company Number: None

PATIENT
  Age: 48 Year
  Sex: Male
  Weight: 75.7507 kg

DRUGS (1)
  1. LYRICA [Suspect]
     Dosage: 75 MG
     Dates: start: 20090901

REACTIONS (2)
  - MUSCLE SPASMS [None]
  - MYALGIA [None]
